FAERS Safety Report 8245141-6 (Version None)
Quarter: 2012Q1

REPORT INFORMATION
  Report Type: 
  Country: None (occurrence: None)
  Receive Date: 20120329
  Receipt Date: 20120314
  Transmission Date: 20120608
  Serious: Yes (Other)
  Sender: FDA-Public Use
  Company Number: BR-US-EMD SERONO, INC.-7120331

PATIENT
  Age: 67 Year
  Sex: Female

DRUGS (4)
  1. CAPTOPRIL [Concomitant]
     Indication: HYPERTENSION
  2. HYDROCHLOROTHIAZIDE [Concomitant]
     Indication: HYPERTENSION
  3. REBIF [Suspect]
     Indication: RELAPSING-REMITTING MULTIPLE SCLEROSIS
     Dates: start: 20060401
  4. MELLARIL [Concomitant]
     Indication: HYPERTENSION

REACTIONS (6)
  - BONE FISSURE [None]
  - DYSARTHRIA [None]
  - FALL [None]
  - SOMNOLENCE [None]
  - TREMOR [None]
  - GAIT DISTURBANCE [None]
